FAERS Safety Report 12469678 (Version 2)
Quarter: 2016Q2

REPORT INFORMATION
  Report Type: Report from Study
  Country: GB (occurrence: GB)
  Receive Date: 20160615
  Receipt Date: 20160617
  Transmission Date: 20160815
  Serious: Yes (Hospitalization)
  Sender: FDA-Public Use
  Company Number: GB-BRISTOL-MYERS SQUIBB COMPANY-BMS-2016-044933

PATIENT
  Age: 75 Year
  Sex: Male
  Weight: 72.6 kg

DRUGS (2)
  1. EXTERNAL-PREDNISOLONE [Suspect]
     Active Substance: PREDNISOLONE
     Indication: PRODUCT USED FOR UNKNOWN INDICATION
     Route: 065
  2. NIVOLUMAB [Suspect]
     Active Substance: NIVOLUMAB
     Indication: NON-SMALL CELL LUNG CANCER
     Dosage: 220 MG, UNK
     Route: 042
     Dates: start: 20160127

REACTIONS (1)
  - Mania [Unknown]

NARRATIVE: CASE EVENT DATE: 20160602
